FAERS Safety Report 9008739 (Version 1)
Quarter: 2013Q1

REPORT INFORMATION
  Report Type: Spontaneous
  Country: JP (occurrence: JP)
  Receive Date: 20130111
  Receipt Date: 20130111
  Transmission Date: 20140127
  Serious: Yes (Death, Other)
  Sender: FDA-Public Use
  Company Number: JP-ABBOTT-13P-087-1033679-00

PATIENT
  Age: 76 Year
  Sex: Male

DRUGS (2)
  1. KLARICID [Suspect]
     Indication: PRODUCT USED FOR UNKNOWN INDICATION
     Route: 048
     Dates: start: 201111, end: 201111
  2. TWO OTHER UNKNOWN MEDICATIONS [Suspect]
     Indication: PRODUCT USED FOR UNKNOWN INDICATION

REACTIONS (2)
  - Drug-induced liver injury [Fatal]
  - Multi-organ failure [Fatal]
